FAERS Safety Report 25049086 (Version 1)
Quarter: 2025Q1

REPORT INFORMATION
  Report Type: Spontaneous
  Country: US (occurrence: US)
  Receive Date: 20250307
  Receipt Date: 20250307
  Transmission Date: 20250408
  Serious: No
  Sender: GLAXOSMITHKLINE
  Company Number: US-GSK-US2025025515

PATIENT
  Age: 88 Year
  Sex: Female

DRUGS (1)
  1. TRELEGY ELLIPTA [Suspect]
     Active Substance: FLUTICASONE FUROATE\UMECLIDINIUM BROMIDE\VILANTEROL TRIFENATATE
     Indication: Chronic obstructive pulmonary disease
     Dosage: 1 PUFF(S), QD, 200-62.5MCG INH 30PUSE
     Route: 055

REACTIONS (2)
  - Fall [Unknown]
  - Pain [Unknown]

NARRATIVE: CASE EVENT DATE: 20250101
